FAERS Safety Report 6015169-5 (Version None)
Quarter: 2008Q4

REPORT INFORMATION
  Report Type: 
  Country: None (occurrence: None)
  Receive Date: 20081219
  Receipt Date: 20081219
  Transmission Date: 20090506
  Serious: Yes (Death)
  Sender: FDA-Public Use
  Company Number: None

PATIENT
  Age: 3 Month
  Sex: Male

DRUGS (1)
  1. SYNAGIS [Suspect]
     Dosage: 1 DOSE
     Route: 030

REACTIONS (2)
  - APNOEIC ATTACK [None]
  - UNRESPONSIVE TO STIMULI [None]
